FAERS Safety Report 6871428-5 (Version None)
Quarter: 2010Q3

REPORT INFORMATION
  Report Type: 
  Country: None (occurrence: None)
  Receive Date: 20100723
  Receipt Date: 20100713
  Transmission Date: 20110219
  Serious: Yes (Life-Threatening, Hospitalization, Disabling, Other)
  Sender: FDA-Public Use
  Company Number: JP-JNJFOC-20100604817

PATIENT
  Sex: Female

DRUGS (13)
  1. CRAVIT [Suspect]
     Indication: PNEUMONIA
     Route: 048
  2. AMARYL [Suspect]
     Indication: DIABETES MELLITUS
     Route: 048
  3. AMARYL [Suspect]
     Route: 048
  4. AMARYL [Suspect]
     Route: 048
  5. METFORMIN HCL [Suspect]
     Indication: DIABETES MELLITUS
     Route: 048
  6. METFORMIN HCL [Suspect]
     Route: 048
  7. LASIX [Concomitant]
     Indication: POLYURIA
     Route: 042
  8. LENDORMIN [Concomitant]
     Indication: INSOMNIA
     Route: 048
  9. HOKUNALIN [Concomitant]
     Indication: BRONCHITIS
     Route: 062
  10. LEXOTAN [Concomitant]
     Route: 048
  11. SETIPTILINE [Concomitant]
     Route: 048
  12. PACETCOOL [Concomitant]
     Indication: PNEUMONIA
     Route: 042
  13. RABEPRAZOLE SODIUM [Concomitant]
     Indication: GASTRITIS
     Route: 048

REACTIONS (6)
  - DEPRESSED LEVEL OF CONSCIOUSNESS [None]
  - DYSARTHRIA [None]
  - HYPOGLYCAEMIA [None]
  - HYPOGLYCAEMIC COMA [None]
  - OVERDOSE [None]
  - RENAL IMPAIRMENT [None]
